FAERS Safety Report 10013949 (Version 1)
Quarter: 2014Q1

REPORT INFORMATION
  Report Type: Spontaneous
  Country: US (occurrence: US)
  Receive Date: 20140316
  Receipt Date: 20140316
  Transmission Date: 20141002
  Serious: No
  Sender: FDA-Public Use
  Company Number: US-LUNDBECK-DKLU1097025

PATIENT
  Sex: Male

DRUGS (8)
  1. ONFI [Suspect]
     Indication: EPILEPSY
     Dates: start: 20130626, end: 20130822
  2. ONFI [Suspect]
     Dates: start: 20130822, end: 20140108
  3. ONFI [Suspect]
     Dates: start: 20140108, end: 201401
  4. ONFI [Suspect]
     Dates: start: 201401
  5. LAMICTAL XR [Concomitant]
     Indication: PRODUCT USED FOR UNKNOWN INDICATION
  6. DEPAKOTE ER [Concomitant]
     Indication: PRODUCT USED FOR UNKNOWN INDICATION
  7. KEPPRA [Concomitant]
     Indication: PRODUCT USED FOR UNKNOWN INDICATION
  8. CLONAZEPAM [Concomitant]
     Indication: PRODUCT USED FOR UNKNOWN INDICATION

REACTIONS (1)
  - Somnolence [Unknown]
